FAERS Safety Report 4486102-2 (Version None)
Quarter: 2004Q4

REPORT INFORMATION
  Report Type: 
  Country: None (occurrence: None)
  Receive Date: 20041021
  Receipt Date: 20041004
  Transmission Date: 20050328
  Serious: Yes (Life-Threatening, Hospitalization)
  Sender: FDA-Public Use
  Company Number: A02200402429

PATIENT
  Age: 70 Year
  Sex: Male

DRUGS (5)
  1. ELOXATIN [Suspect]
     Indication: COLON CANCER
     Dosage: 100 MG/M2 OTHER
     Route: 050
     Dates: start: 20040510, end: 20040510
  2. FLUOROURACIL [Concomitant]
  3. FOLINIC ACID [Concomitant]
  4. POLARAMINE [Concomitant]
  5. CORTICOSTEROIDS [Concomitant]

REACTIONS (4)
  - HYPOTENSION [None]
  - LOSS OF CONSCIOUSNESS [None]
  - SHOCK [None]
  - URINARY INCONTINENCE [None]
